FAERS Safety Report 12571159 (Version 2)
Quarter: 2016Q3

REPORT INFORMATION
  Report Type: Report from Study
  Country: CA (occurrence: CA)
  Receive Date: 20160719
  Receipt Date: 20160720
  Transmission Date: 20161109
  Serious: Yes (Hospitalization)
  Sender: FDA-Public Use
  Company Number: CA-ABBVIE-16K-028-1675392-00

PATIENT
  Sex: Male

DRUGS (2)
  1. HUMIRA [Suspect]
     Active Substance: ADALIMUMAB
     Dosage: 80 MG ONE WEEK AND 40 MG THE FOLLOWING WEEK
     Route: 058
     Dates: start: 2016
  2. HUMIRA [Suspect]
     Active Substance: ADALIMUMAB
     Indication: CROHN^S DISEASE
     Dosage: 80 MG ONE WEEK AND 40 MG THE FOLLOWING WEEK
     Route: 058
     Dates: start: 20101001, end: 2016

REACTIONS (1)
  - Intestinal obstruction [Not Recovered/Not Resolved]
